FAERS Safety Report 8764241 (Version 2)
Quarter: 2012Q4

REPORT INFORMATION
  Report Type: 
  Country: US (occurrence: US)
  Receive Date: 20120831
  Receipt Date: 20120905
  Transmission Date: 20130627
  Serious: Yes (Other)
  Sender: FDA-Public Use
  Company Number: US-GILEAD-2012-0060500

PATIENT
  Age: 78 Year
  Sex: Male

DRUGS (16)
  1. LETAIRIS [Suspect]
     Indication: PULMONARY HYPERTENSION
     Dosage: 5 mg, UNK
     Route: 048
     Dates: start: 20120813
  2. LETAIRIS [Suspect]
     Indication: AORTIC VALVE REPAIR
  3. LETAIRIS [Suspect]
     Indication: MITRAL VALVE REPAIR
  4. ALLOPURINOL [Concomitant]
  5. ALPRAZOLAM [Concomitant]
  6. ASPIRIN [Concomitant]
  7. COUMADIN /00014802/ [Concomitant]
  8. FERROUS SULFATE [Concomitant]
  9. LASIX                              /00032601/ [Concomitant]
  10. LISINOPRIL [Concomitant]
  11. METOPROLOL [Concomitant]
  12. OMEPRAZOLE [Concomitant]
  13. PREDNISONE [Concomitant]
  14. REVATIO [Concomitant]
  15. VITAMIN D3 [Concomitant]
  16. ZOLPIDEM [Concomitant]

REACTIONS (1)
  - Myocardial infarction [Unknown]
